FAERS Safety Report 14376196 (Version 1)
Quarter: 2018Q1

REPORT INFORMATION
  Report Type: Spontaneous
  Country: US (occurrence: US)
  Receive Date: 20180111
  Receipt Date: 20180111
  Transmission Date: 20180509
  Serious: Yes (Other)
  Sender: FDA-Public Use
  Company Number: US-SAOL THERAPEUTICS-2018SAO00014

PATIENT
  Age: 16 Year
  Sex: Male

DRUGS (1)
  1. BACLOFEN. [Suspect]
     Active Substance: BACLOFEN
     Route: 037

REACTIONS (3)
  - Muscle injury [Recovered/Resolved]
  - Implant site extravasation [Recovered/Resolved]
  - Implant site discharge [Recovered/Resolved]

NARRATIVE: CASE EVENT DATE: 20180102
